FAERS Safety Report 5800932-3 (Version None)
Quarter: 2008Q3

REPORT INFORMATION
  Report Type: 
  Country: None (occurrence: None)
  Receive Date: 20080702
  Receipt Date: 20080616
  Transmission Date: 20090109
  Serious: Yes (Hospitalization, Disabling)
  Sender: FDA-Public Use
  Company Number: 2008AL006952

PATIENT
  Age: 44 Year
  Sex: Female

DRUGS (1)
  1. DIGOXIN [Suspect]
     Indication: CARDIAC DISORDER
     Dosage: 0.25 MG DAILY PO
     Route: 048

REACTIONS (3)
  - BRADYCARDIA [None]
  - DEPRESSION [None]
  - SYNCOPE [None]
